FAERS Safety Report 13950199 (Version 1)
Quarter: 2017Q3

REPORT INFORMATION
  Report Type: Spontaneous
  Country: US (occurrence: US)
  Receive Date: 20170908
  Receipt Date: 20170908
  Transmission Date: 20171128
  Serious: Yes (Death, Other)
  Sender: FDA-Public Use
  Company Number: US-MYLANLABS-2017M1055429

PATIENT
  Age: 37 Year
  Sex: Male

DRUGS (5)
  1. HYDROCORTISONE. [Concomitant]
     Active Substance: HYDROCORTISONE
     Indication: THYROTOXIC CRISIS
     Route: 065
  2. PROPRANOLOL [Suspect]
     Active Substance: PROPRANOLOL HYDROCHLORIDE
     Indication: THYROTOXIC CRISIS
     Route: 065
  3. COLESTYRAMINE [Concomitant]
     Active Substance: CHOLESTYRAMINE
     Indication: THYROTOXIC CRISIS
     Route: 065
  4. ESMOLOL [Suspect]
     Active Substance: ESMOLOL HYDROCHLORIDE
     Indication: THYROTOXIC CRISIS
     Route: 065
  5. PROPYLTHIOURACIL. [Concomitant]
     Active Substance: PROPYLTHIOURACIL
     Indication: THYROTOXIC CRISIS
     Route: 065

REACTIONS (2)
  - Bradycardia [Fatal]
  - Cardiac arrest [Fatal]
